FAERS Safety Report 6763103-2 (Version None)
Quarter: 2010Q2

REPORT INFORMATION
  Report Type: 
  Country: None (occurrence: None)
  Receive Date: 20100609
  Receipt Date: 20100603
  Transmission Date: 20101027
  Serious: Yes (Hospitalization)
  Sender: FDA-Public Use
  Company Number: US-MYLANLABS-2010S1009454

PATIENT
  Age: 71 Year
  Sex: Female
  Weight: 83.92 kg

DRUGS (4)
  1. AMLODIPINE BESYLATE [Suspect]
     Indication: BLOOD PRESSURE INCREASED
     Route: 048
     Dates: start: 20100202, end: 20100218
  2. FISH OIL [Concomitant]
  3. GLUCOSAMINE [Concomitant]
  4. NAPROXEN SODIUM TABLETS, USP [Concomitant]

REACTIONS (2)
  - CEREBROVASCULAR ACCIDENT [None]
  - OEDEMA PERIPHERAL [None]
